FAERS Safety Report 8619240-0 (Version None)
Quarter: 2012Q3

REPORT INFORMATION
  Report Type: 
  Country: None (occurrence: None)
  Receive Date: 20120824
  Receipt Date: 20120813
  Transmission Date: 20120928
  Serious: Yes (Hospitalization)
  Sender: FDA-Public Use
  Company Number: ZA-NOVOPROD-358005

PATIENT
  Sex: Female
  Weight: 2.5 kg

DRUGS (3)
  1. LEVEMIR [Suspect]
     Dosage: 25 U, QD
     Route: 064
     Dates: start: 20110311
  2. LEVEMIR [Suspect]
     Indication: DIABETES MELLITUS
     Dosage: 25 U, QD
     Route: 064
     Dates: start: 20110311
  3. NOVORAPID FLEXPEN [Suspect]
     Indication: DIABETES MELLITUS
     Dosage: 51 U, QD
     Route: 064
     Dates: start: 20110311

REACTIONS (2)
  - FOETAL EXPOSURE DURING PREGNANCY [None]
  - PREMATURE BABY [None]
